FAERS Safety Report 18944651 (Version 1)
Quarter: 2021Q1

REPORT INFORMATION
  Report Type: Spontaneous
  Country: US (occurrence: US)
  Receive Date: 20210226
  Receipt Date: 20210226
  Transmission Date: 20210420
  Serious: Yes (Hospitalization)
  Sender: FDA-Public Use
  Company Number: None

PATIENT
  Sex: Female

DRUGS (4)
  1. METFORMIN HCL [Concomitant]
     Active Substance: METFORMIN HYDROCHLORIDE
  2. MYCAPSSA [Suspect]
     Active Substance: OCTREOTIDE
     Indication: GIGANTISM
     Route: 048
  3. MYCAPSSA [Suspect]
     Active Substance: OCTREOTIDE
     Indication: ACROMEGALY
     Route: 048
  4. CABERGOLINE. [Concomitant]
     Active Substance: CABERGOLINE

REACTIONS (1)
  - Bunion operation [None]
